FAERS Safety Report 8223625-4 (Version None)
Quarter: 2012Q1

REPORT INFORMATION
  Report Type: 
  Country: None (occurrence: None)
  Receive Date: 20120316
  Receipt Date: 20120302
  Transmission Date: 20120608
  Serious: No
  Sender: FDA-Public Use
  Company Number: NGX_00892_2012

PATIENT
  Age: 49 Year
  Sex: Female

DRUGS (6)
  1. BACLOFEN [Concomitant]
  2. TRAMADOL HCL [Concomitant]
  3. DULOXETIME HYDROCHLORIDE [Concomitant]
  4. FLUOXETINE HCL [Concomitant]
  5. LIDOCAINE [Concomitant]
  6. QUTENZA [Suspect]
     Indication: NEURALGIA
     Dosage: (2 DF 1X,  [PATCH, APPLIED TO THE BACK OF THE FOOT] TOPICAL)
     Route: 061
     Dates: start: 20111125, end: 20111125

REACTIONS (4)
  - PAIN [None]
  - MALAISE [None]
  - INFLUENZA LIKE ILLNESS [None]
  - CHILLS [None]
